FAERS Safety Report 24641537 (Version 1)
Quarter: 2024Q4

REPORT INFORMATION
  Report Type: Spontaneous
  Country: FR (occurrence: None)
  Receive Date: 20241120
  Receipt Date: 20241120
  Transmission Date: 20250115
  Serious: Yes (Hospitalization, Other)
  Sender: MDD OPERATIONS
  Company Number: FR-MDD US Operations-MDD202411-004354

PATIENT
  Age: 79 Year
  Sex: Female

DRUGS (11)
  1. APOMORPHINE HYDROCHLORIDE [Suspect]
     Active Substance: APOMORPHINE HYDROCHLORIDE
     Indication: On and off phenomenon
     Dosage: NOT PROVIDED
  2. APOMORPHINE HYDROCHLORIDE [Suspect]
     Active Substance: APOMORPHINE HYDROCHLORIDE
     Dates: start: 202311
  3. APOMORPHINE HYDROCHLORIDE [Suspect]
     Active Substance: APOMORPHINE HYDROCHLORIDE
     Dosage: INCREASED 0.5 MG/H UP TO A DOSE OF 3.5 MG/HOUR OVER 13 HOUR PER DAY (TOTAL DAILY APOMORPHINE: 45.5 M
     Dates: start: 202311
  4. L-dopa/carbidopa/entacapone [Concomitant]
     Indication: Parkinson^s disease
     Dosage: EACH DF CONTAINS 100 MG/25 MG/200 MG
     Route: 048
     Dates: start: 2023
  5. L-dopa/carbidopa/entacapone [Concomitant]
     Dosage: EACH DF CONTAINS 75 MG/18.75 MG/200 MG
  6. L-dopa/carbidopa/entacapone [Concomitant]
     Dosage: EACH DF CONTAINS 100 MG/25 MG/200 MG
  7. L-dopa/benserazide [Concomitant]
     Indication: Parkinson^s disease
     Dosage: EACH DF CONTAINS 100 MG/25 MG
     Route: 048
     Dates: start: 2023
  8. ROPINIROLE [Concomitant]
     Active Substance: ROPINIROLE
     Indication: Parkinson^s disease
     Route: 048
     Dates: start: 2023
  9. AMANTADINE [Concomitant]
     Active Substance: AMANTADINE
     Indication: Parkinson^s disease
     Route: 048
     Dates: start: 2023
  10. AMLODIPINE [Concomitant]
     Active Substance: AMLODIPINE BESYLATE
     Indication: Hypertension
     Dosage: NOT PROVIDED
  11. DOMPERIDONE [Concomitant]
     Active Substance: DOMPERIDONE

REACTIONS (1)
  - Thrombocytopenia [Recovered/Resolved]
